FAERS Safety Report 25378962 (Version 1)
Quarter: 2025Q2

REPORT INFORMATION
  Report Type: Spontaneous
  Country: US (occurrence: US)
  Receive Date: 20250530
  Receipt Date: 20250530
  Transmission Date: 20250717
  Serious: Yes (Death, Other)
  Sender: BRISTOL-MYERS SQUIBB COMPANY
  Company Number: US-BRISTOL-MYERS SQUIBB COMPANY-2025-076601

PATIENT
  Age: 66 Year
  Sex: Female

DRUGS (1)
  1. POMALYST [Suspect]
     Active Substance: POMALIDOMIDE
     Indication: Plasma cell myeloma
     Route: 048
     Dates: start: 20250214, end: 20250313

REACTIONS (6)
  - Asthenia [Unknown]
  - Dizziness [Unknown]
  - Cardio-respiratory arrest [Fatal]
  - Fall [Unknown]
  - Head injury [Unknown]
  - Atrial fibrillation [Unknown]
